FAERS Safety Report 6091439-X (Version None)
Quarter: 2009Q1

REPORT INFORMATION
  Report Type: 
  Country: None (occurrence: None)
  Receive Date: 20090225
  Receipt Date: 20090211
  Transmission Date: 20090719
  Serious: Yes (Hospitalization)
  Sender: FDA-Public Use
  Company Number: US-ELI_LILLY_AND_COMPANY-US200902002620

PATIENT
  Sex: Female

DRUGS (3)
  1. FORTEO [Suspect]
     Indication: SPINAL FRACTURE
     Dosage: UNK, UNK
     Dates: start: 20080701
  2. AGGRENOX [Concomitant]
     Indication: ANTICOAGULANT THERAPY
  3. ZANTAC [Concomitant]

REACTIONS (9)
  - ABNORMAL SENSATION IN EYE [None]
  - DEATH OF RELATIVE [None]
  - DRUG HYPERSENSITIVITY [None]
  - EATING DISORDER [None]
  - HEADACHE [None]
  - HYPERSENSITIVITY [None]
  - INJECTION SITE DISCOLOURATION [None]
  - PALPITATIONS [None]
  - PANIC DISORDER [None]
